FAERS Safety Report 17995994 (Version 1)
Quarter: 2020Q3

REPORT INFORMATION
  Report Type: Report from Study
  Country: KR (occurrence: KR)
  Receive Date: 20200708
  Receipt Date: 20200708
  Transmission Date: 20201103
  Serious: Yes (Other)
  Sender: FDA-Public Use
  Company Number: KR-EISAI MEDICAL RESEARCH-EC-2020-076947

PATIENT
  Age: 69 Year
  Sex: Male
  Weight: 64.3 kg

DRUGS (4)
  1. PREAD [Concomitant]
     Indication: CHRONIC HEPATITIS C
     Route: 048
  2. LOPMIN [Concomitant]
     Indication: PROPHYLAXIS
     Route: 048
     Dates: start: 20200526
  3. INDENOL [Concomitant]
     Active Substance: PROPRANOLOL HYDROCHLORIDE
     Indication: HEPATIC CIRRHOSIS
     Route: 048
     Dates: start: 20190826
  4. LENVIMA [Suspect]
     Active Substance: LENVATINIB
     Indication: HEPATOCELLULAR CARCINOMA
     Route: 048
     Dates: start: 20200526, end: 20200610

REACTIONS (1)
  - Cardiac failure [Recovering/Resolving]

NARRATIVE: CASE EVENT DATE: 20200611
